FAERS Safety Report 7495407-2 (Version None)
Quarter: 2011Q2

REPORT INFORMATION
  Report Type: 
  Country: None (occurrence: None)
  Receive Date: 20110513
  Receipt Date: 20110503
  Transmission Date: 20111010
  Serious: Yes (Other)
  Sender: FDA-Public Use
  Company Number: OMPQ-NO-1105S-0395

PATIENT
  Age: 66 Year
  Sex: Male

DRUGS (1)
  1. OMNIPAQUE 70 [Suspect]
     Indication: PRODUCT USED FOR UNKNOWN INDICATION
     Dosage: SINGLE DOSE, INTRAVENOUS
     Route: 042
     Dates: start: 20110409, end: 20110409

REACTIONS (1)
  - INFUSION SITE EXTRAVASATION [None]
